FAERS Safety Report 7878827-3 (Version None)
Quarter: 2011Q4

REPORT INFORMATION
  Report Type: 
  Country: None (occurrence: None)
  Receive Date: 20111021
  Receipt Date: 20110921
  Transmission Date: 20120403
  Serious: No
  Sender: FDA-Public Use
  Company Number: US-006349

PATIENT
  Sex: Male

DRUGS (1)
  1. DEGARELIX (240 MG, 80 MG) [Suspect]
     Indication: PROSTATE CANCER
     Dosage: (240 MG 1X SUBCUTANEOUS) ; (SUBCUTANEOUS)
     Route: 058

REACTIONS (1)
  - INJECTION SITE HYPERSENSITIVITY [None]
